FAERS Safety Report 10351147 (Version 1)
Quarter: 2014Q3

REPORT INFORMATION
  Report Type: Report from Study
  Country: US (occurrence: US)
  Receive Date: 20140730
  Receipt Date: 20140730
  Transmission Date: 20150326
  Serious: Yes (Hospitalization)
  Sender: FDA-Public Use
  Company Number: US-SA-2014SA099443

PATIENT
  Age: 59 Year
  Sex: Female

DRUGS (2)
  1. LANTUS SOLOSTAR [Suspect]
     Active Substance: INSULIN GLARGINE
     Indication: DIABETES MELLITUS
     Dosage: DOSE: 10 UNITS IN THE MORNING AND 20 UNITS AT NIGHT
     Route: 065
     Dates: start: 201405
  2. SOLOSTAR [Concomitant]
     Active Substance: DEVICE
     Dates: start: 201405

REACTIONS (3)
  - Aneurysm [Recovered/Resolved]
  - Surgery [Unknown]
  - Drug administration error [Unknown]

NARRATIVE: CASE EVENT DATE: 201405
